FAERS Safety Report 7802468-7 (Version None)
Quarter: 2011Q4

REPORT INFORMATION
  Report Type: 
  Country: None (occurrence: None)
  Receive Date: 20111007
  Receipt Date: 20110928
  Transmission Date: 20120403
  Serious: Yes (Other)
  Sender: FDA-Public Use
  Company Number: US-GLAXOSMITHKLINE-A0946322A

PATIENT
  Age: 29 Year
  Sex: Female

DRUGS (4)
  1. PAXIL [Suspect]
     Indication: PANIC DISORDER
     Dosage: 15MG PER DAY
     Route: 048
     Dates: start: 20000101
  2. PAXIL CR [Suspect]
     Indication: PANIC DISORDER
     Dosage: 20MG PER DAY
     Route: 065
  3. PROZAC [Suspect]
     Indication: POSTPARTUM DISORDER
     Route: 065
  4. NO CONCURRENT MEDICATION [Concomitant]

REACTIONS (12)
  - ANXIETY [None]
  - PARAESTHESIA [None]
  - WEIGHT INCREASED [None]
  - HALLUCINATION, VISUAL [None]
  - QUALITY OF LIFE DECREASED [None]
  - PARAESTHESIA ORAL [None]
  - ABORTION SPONTANEOUS [None]
  - MATERNAL EXPOSURE DURING PREGNANCY [None]
  - POSTPARTUM DISORDER [None]
  - HEART RATE IRREGULAR [None]
  - DRUG WITHDRAWAL SYNDROME [None]
  - WITHDRAWAL SYNDROME [None]
